FAERS Safety Report 7800590-2 (Version None)
Quarter: 2011Q4

REPORT INFORMATION
  Report Type: 
  Country: None (occurrence: None)
  Receive Date: 20111006
  Receipt Date: 20110929
  Transmission Date: 20120403
  Serious: Yes (Hospitalization, Other)
  Sender: FDA-Public Use
  Company Number: US-ACTELION-A-US2010-35808

PATIENT

DRUGS (7)
  1. TRACLEER [Suspect]
     Indication: PULMONARY ARTERIAL HYPERTENSION
     Dosage: 125 MG, BID
     Route: 048
     Dates: start: 20061101, end: 20100201
  2. HYDROXYCHLOROQUINE SULFATE [Suspect]
     Dosage: UNK
     Route: 048
     Dates: start: 20080101
  3. TRACLEER [Suspect]
     Dosage: 62.5 MG, BID
     Route: 048
     Dates: start: 20061001, end: 20061101
  4. AZATHIOPRINE [Suspect]
     Dosage: UNK
     Route: 048
     Dates: start: 20080101
  5. TRACLEER [Suspect]
     Dosage: 62.5 MG, BID
     Route: 048
     Dates: start: 20100201, end: 20100303
  6. REVATIO [Concomitant]
  7. TRACLEER [Suspect]
     Dosage: 125 MG, BID
     Route: 048
     Dates: start: 20100304

REACTIONS (17)
  - THROMBOCYTOPENIA [None]
  - ALANINE AMINOTRANSFERASE INCREASED [None]
  - INCREASED UPPER AIRWAY SECRETION [None]
  - NAUSEA [None]
  - OEDEMA PERIPHERAL [None]
  - DYSPNOEA [None]
  - HYPOTENSION [None]
  - ASPARTATE AMINOTRANSFERASE INCREASED [None]
  - COUGH [None]
  - SEPSIS [None]
  - RIGHT VENTRICULAR FAILURE [None]
  - HEPATIC CONGESTION [None]
  - DISSEMINATED INTRAVASCULAR COAGULATION [None]
  - DIARRHOEA [None]
  - PNEUMONIA [None]
  - LIVER INJURY [None]
  - VOMITING [None]
